FAERS Safety Report 6933886-7 (Version None)
Quarter: 2010Q3

REPORT INFORMATION
  Report Type: 
  Country: None (occurrence: None)
  Receive Date: 20100820
  Receipt Date: 20100810
  Transmission Date: 20110219
  Serious: Yes (Other)
  Sender: FDA-Public Use
  Company Number: US-PFIZER INC-2010100438

PATIENT
  Age: 37 Year
  Sex: Male
  Weight: 88.435 kg

DRUGS (1)
  1. DILANTIN [Suspect]
     Indication: GRAND MAL CONVULSION
     Dosage: 100 MG, 3X/DAY

REACTIONS (2)
  - BRAIN INJURY [None]
  - GRAND MAL CONVULSION [None]
